FAERS Safety Report 17609477 (Version 2)
Quarter: 2020Q2

REPORT INFORMATION
  Report Type: Spontaneous
  Country: PL (occurrence: PL)
  Receive Date: 20200401
  Receipt Date: 20200521
  Transmission Date: 20200713
  Serious: Yes (Death, Other)
  Sender: FDA-Public Use
  Company Number: PL-ASTELLAS-2020US011286

PATIENT
  Age: 88 Year
  Sex: Male

DRUGS (4)
  1. BINABIC [Suspect]
     Active Substance: BICALUTAMIDE
     Indication: PRODUCT USED FOR UNKNOWN INDICATION
     Dosage: UNK UNK, UNKNOWN FREQ.
     Route: 065
  2. MICARDIS [Concomitant]
     Active Substance: TELMISARTAN
     Indication: HYPERTENSION
     Dosage: UNK UNK, UNKNOWN FREQ.
     Route: 065
  3. TERTENSIF [Concomitant]
     Active Substance: INDAPAMIDE
     Indication: HYPERTENSION
     Dosage: UNK UNK, UNKNOWN FREQ.
     Route: 065
  4. XTANDI [Suspect]
     Active Substance: ENZALUTAMIDE
     Indication: PROSTATE CANCER
     Dosage: 1 DF, THRICE DAILY (EVERY 8 HOURS)
     Route: 048
     Dates: start: 202002

REACTIONS (10)
  - Rash pustular [Recovering/Resolving]
  - Underdose [Unknown]
  - Interstitial lung disease [Fatal]
  - Rash pruritic [Recovering/Resolving]
  - Blood pressure decreased [Recovered/Resolved]
  - Delirium [Unknown]
  - Rash erythematous [Recovering/Resolving]
  - Inappropriate schedule of product administration [Unknown]
  - Mental disorder [Unknown]
  - Pyrexia [Not Recovered/Not Resolved]

NARRATIVE: CASE EVENT DATE: 202002
